FAERS Safety Report 20140145 (Version 1)
Quarter: 2021Q4

REPORT INFORMATION
  Report Type: Spontaneous
  Country: KR (occurrence: KR)
  Receive Date: 20211202
  Receipt Date: 20211202
  Transmission Date: 20220304
  Serious: No
  Sender: FDA-Public Use
  Company Number: None

PATIENT
  Age: 69 Year
  Sex: Female

DRUGS (4)
  1. LEVETIRACETAM [Suspect]
     Active Substance: LEVETIRACETAM
     Indication: Status epilepticus
     Dosage: 1000 MILLIGRAM, QD
     Route: 048
  2. PHENYTOIN [Concomitant]
     Active Substance: PHENYTOIN
     Indication: Seizure
     Dosage: 300 MILLIGRAM, QD
     Route: 065
  3. PHENYTOIN [Concomitant]
     Active Substance: PHENYTOIN
     Dosage: 900 MILLIGRAM, QD
     Route: 065
  4. PHENYTOIN [Concomitant]
     Active Substance: PHENYTOIN
     Dosage: 200 MILLIGRAM, QD
     Route: 065

REACTIONS (1)
  - Tremor [Recovered/Resolved]
